FAERS Safety Report 5704400-9 (Version None)
Quarter: 2008Q2

REPORT INFORMATION
  Report Type: 
  Country: None (occurrence: None)
  Receive Date: 20080414
  Receipt Date: 20080409
  Transmission Date: 20081010
  Serious: Yes (Life-Threatening)
  Sender: FDA-Public Use
  Company Number: B0507583A

PATIENT
  Age: 77 Year
  Sex: Male

DRUGS (7)
  1. ALLOPURINOL [Suspect]
     Dosage: 300MG PER DAY
     Route: 048
     Dates: start: 20071024, end: 20071118
  2. VALACYCLOVIR [Suspect]
     Dosage: 500MG TWICE PER DAY
     Route: 048
     Dates: start: 20071024, end: 20071118
  3. BACTRIM [Suspect]
     Dosage: 1TAB PER DAY
     Route: 048
     Dates: start: 20071024, end: 20071118
  4. SUBCUVIA [Suspect]
     Indication: CHRONIC LYMPHOCYTIC LEUKAEMIA
     Route: 058
     Dates: start: 20071024, end: 20071113
  5. LEDERFOLINE [Concomitant]
     Dosage: 25MG WEEKLY
     Route: 048
     Dates: start: 20071024, end: 20071118
  6. CYCLOPHOSPHAMIDE [Concomitant]
     Indication: CHRONIC LYMPHOCYTIC LEUKAEMIA
     Route: 048
     Dates: start: 20071025, end: 20071027
  7. FLUDARA [Concomitant]
     Indication: CHRONIC LYMPHOCYTIC LEUKAEMIA
     Route: 048
     Dates: start: 20071025, end: 20071027

REACTIONS (10)
  - CHILLS [None]
  - DRUG RASH WITH EOSINOPHILIA AND SYSTEMIC SYMPTOMS [None]
  - DYSPNOEA [None]
  - FACE OEDEMA [None]
  - HYPOTENSION [None]
  - LYMPHADENOPATHY [None]
  - PYREXIA [None]
  - RASH MACULO-PAPULAR [None]
  - RASH PUSTULAR [None]
  - RENAL FAILURE ACUTE [None]
